FAERS Safety Report 21449682 (Version 1)
Quarter: 2022Q4

REPORT INFORMATION
  Report Type: Spontaneous
  Country: FR (occurrence: FR)
  Receive Date: 20221013
  Receipt Date: 20221013
  Transmission Date: 20230112
  Serious: Yes (Other)
  Sender: FDA-Public Use
  Company Number: ALC2022FR004707

PATIENT

DRUGS (1)
  1. CYCLOPENTOLATE [Suspect]
     Active Substance: CYCLOPENTOLATE
     Indication: Ophthalmological examination
     Dosage: 1 DRP (DROP1/12 MILILITRE)
     Route: 047
     Dates: start: 20220922, end: 20220922

REACTIONS (2)
  - Abnormal behaviour [Recovering/Resolving]
  - Hallucination [Recovering/Resolving]

NARRATIVE: CASE EVENT DATE: 20220922
